FAERS Safety Report 5493164-2 (Version None)
Quarter: 2007Q4

REPORT INFORMATION
  Report Type: 
  Country: None (occurrence: None)
  Receive Date: 20071022
  Receipt Date: 20071022
  Transmission Date: 20080405
  Serious: No
  Sender: FDA-Public Use
  Company Number: None

PATIENT
  Age: 54 Year
  Sex: Female
  Weight: 117 kg

DRUGS (1)
  1. VENOFER [Suspect]
     Indication: IRON DEFICIENCY ANAEMIA
     Dosage: 300 MG ONCE IV
     Route: 042
     Dates: start: 20070927

REACTIONS (3)
  - COUGH [None]
  - INFUSION RELATED REACTION [None]
  - THROAT TIGHTNESS [None]
